FAERS Safety Report 24983786 (Version 2)
Quarter: 2025Q3

REPORT INFORMATION
  Report Type: Spontaneous
  Country: US (occurrence: US)
  Receive Date: 20250219
  Receipt Date: 20250809
  Transmission Date: 20251020
  Serious: Yes (Other)
  Sender: ALEXION PHARMACEUTICALS
  Company Number: US-ASTRAZENECA-202502USA010321US

PATIENT

DRUGS (3)
  1. CRESTOR [Suspect]
     Active Substance: ROSUVASTATIN CALCIUM
     Route: 065
  2. TIKOSYN [Suspect]
     Active Substance: DOFETILIDE
     Route: 065
  3. DOFETILIDE [Suspect]
     Active Substance: DOFETILIDE
     Route: 065

REACTIONS (4)
  - Myocardial infarction [Unknown]
  - Atrial fibrillation [Unknown]
  - Illness [Unknown]
  - Blood pressure decreased [Unknown]
